FAERS Safety Report 5987699-3 (Version None)
Quarter: 2008Q4

REPORT INFORMATION
  Report Type: 
  Country: None (occurrence: None)
  Receive Date: 20081209
  Receipt Date: 20081202
  Transmission Date: 20090506
  Serious: Yes (Hospitalization)
  Sender: FDA-Public Use
  Company Number: US-B.I. PHARMACEUTICALS,INC./RIDGEFIELD-2008-BP-18105BP

PATIENT
  Age: 82 Year
  Sex: Male

DRUGS (3)
  1. MIRAPEX [Suspect]
     Dates: start: 20071101
  2. VIAGRA [Concomitant]
  3. FLOMAX [Concomitant]
     Indication: PROSTATIC DISORDER

REACTIONS (8)
  - ABNORMAL BEHAVIOUR [None]
  - CERVICAL VERTEBRAL FRACTURE [None]
  - COMPULSIVE SEXUAL BEHAVIOUR [None]
  - OBSESSIVE THOUGHTS [None]
  - PARAPHILIA [None]
  - PROSTITUTE [None]
  - ROAD TRAFFIC ACCIDENT [None]
  - SUDDEN ONSET OF SLEEP [None]
